FAERS Safety Report 8953936 (Version 1)
Quarter: 2012Q4

REPORT INFORMATION
  Report Type: 
  Country: ES (occurrence: ES)
  Receive Date: 20121206
  Receipt Date: 20121206
  Transmission Date: 20130627
  Serious: Yes (Hospitalization)
  Sender: FDA-Public Use
  Company Number: ES-B.I. PHARMACEUTICALS,INC./RIDGEFIELD-2012-ES-00484ES

PATIENT
  Age: 69 Year
  Sex: Male

DRUGS (6)
  1. PRADAXA [Suspect]
     Indication: PROPHYLAXIS
     Dosage: 220 mg
     Route: 048
     Dates: start: 20120213
  2. ENALAPRIL [Concomitant]
     Dosage: 2.5 mg
     Route: 048
  3. OMEPRAZOLE [Concomitant]
     Indication: PROPHYLAXIS
     Dosage: 20 mg
     Route: 048
  4. ATORVASTATINA [Concomitant]
     Indication: PROPHYLAXIS
     Dosage: 40 mg
     Route: 048
  5. ATENOLOL [Concomitant]
     Indication: PROPHYLAXIS
     Dosage: 50 mg
     Route: 048
  6. ACIDO ACETILSALICILICO BAYFARMA [Concomitant]
     Indication: PROPHYLAXIS
     Dosage: 100 mg
     Route: 048

REACTIONS (3)
  - Transient ischaemic attack [Unknown]
  - Drug ineffective [Recovered/Resolved]
  - Aphasia [Recovered/Resolved]
